FAERS Safety Report 8617203-2 (Version None)
Quarter: 2012Q3

REPORT INFORMATION
  Report Type: 
  Country: None (occurrence: None)
  Receive Date: 20120823
  Receipt Date: 20120814
  Transmission Date: 20120928
  Serious: Yes (Hospitalization)
  Sender: FDA-Public Use
  Company Number: US-ASTRAZENECA-2012SE57395

PATIENT
  Age: 48 Year
  Sex: Male
  Weight: 65.3 kg

DRUGS (7)
  1. SEROQUEL [Suspect]
     Indication: BIPOLAR DISORDER
     Route: 048
     Dates: start: 20050101
  2. PROZAC [Concomitant]
  3. LISINOPRIL [Suspect]
     Route: 048
  4. OXYCODONE HCL [Concomitant]
  5. TRAZODONE HYDROCHLORIDE [Concomitant]
  6. SEROQUEL [Suspect]
     Indication: SCHIZOPHRENIA
     Route: 048
     Dates: start: 20050101
  7. SOMA [Concomitant]

REACTIONS (3)
  - ROAD TRAFFIC ACCIDENT [None]
  - DECREASED APPETITE [None]
  - WEIGHT DECREASED [None]
